FAERS Safety Report 7741621-8 (Version None)
Quarter: 2011Q3

REPORT INFORMATION
  Report Type: 
  Country: None (occurrence: None)
  Receive Date: 20110911
  Receipt Date: 20110902
  Transmission Date: 20111222
  Serious: Yes (Life-Threatening, Hospitalization)
  Sender: FDA-Public Use
  Company Number: US-CELGENEUS-163-50794-11090595

PATIENT
  Age: 50 Year
  Sex: Male

DRUGS (1)
  1. VIDAZA [Suspect]
     Route: 041
     Dates: start: 20100121

REACTIONS (1)
  - CARDIO-RESPIRATORY ARREST [None]
